FAERS Safety Report 15081472 (Version 2)
Quarter: 2018Q2

REPORT INFORMATION
  Report Type: Spontaneous
  Country: AT (occurrence: AT)
  Receive Date: 20180628
  Receipt Date: 20180628
  Transmission Date: 20180711
  Serious: Yes (Other)
  Sender: FDA-Public Use
  Company Number: PHHY2018AT027363

PATIENT
  Sex: Female

DRUGS (3)
  1. CICLOSPORIN [Suspect]
     Active Substance: CYCLOSPORINE
     Indication: NEPHROTIC SYNDROME
     Route: 065
  2. RITUXIMAB. [Suspect]
     Active Substance: RITUXIMAB
     Indication: NEPHROTIC SYNDROME
     Dosage: 1 G, ONCE/SINGLE
     Route: 065
     Dates: start: 201409
  3. RITUXIMAB. [Suspect]
     Active Substance: RITUXIMAB
     Dosage: UNK UNK, ONCE/SINGLE
     Route: 065
     Dates: start: 201507

REACTIONS (8)
  - Hilar lymphadenopathy [Recovered/Resolved]
  - Dyspnoea [Recovered/Resolved]
  - Nephrotic syndrome [Recovered/Resolved]
  - Sarcoidosis [Recovered/Resolved]
  - Arthritis [Recovered/Resolved]
  - Disease recurrence [Recovered/Resolved]
  - Erythema nodosum [Recovered/Resolved]
  - Product use in unapproved indication [Unknown]

NARRATIVE: CASE EVENT DATE: 201510
